FAERS Safety Report 5506732-6 (Version None)
Quarter: 2007Q4

REPORT INFORMATION
  Report Type: 
  Country: None (occurrence: None)
  Receive Date: 20071101
  Receipt Date: 20071005
  Transmission Date: 20080405
  Serious: No
  Sender: FDA-Public Use
  Company Number: 60596

PATIENT

DRUGS (2)
  1. IBUPROFEN [Suspect]
     Indication: PAIN
     Dosage: ORAL
     Route: 048
  2. DICLOFENAC SODIUM [Concomitant]

REACTIONS (2)
  - NEPHRITIS INTERSTITIAL [None]
  - RENAL FAILURE [None]
